FAERS Safety Report 4559705-4 (Version None)
Quarter: 2005Q1

REPORT INFORMATION
  Report Type: 
  Country: None (occurrence: None)
  Receive Date: 20050107
  Receipt Date: 20040107
  Transmission Date: 20050727
  Serious: Yes (Other)
  Sender: FDA-Public Use
  Company Number: HQWYE194508JAN04

PATIENT
  Sex: Female

DRUGS (3)
  1. CORDARONE [Suspect]
     Indication: HEART RATE IRREGULAR
     Dosage: 800 MG 1X PER 1 DAY, ORAL
     Route: 048
     Dates: start: 20000601, end: 20000101
  2. CORDARONE [Suspect]
     Indication: HEART RATE IRREGULAR
     Dosage: 800 MG 1X PER 1 DAY, ORAL
     Route: 048
     Dates: start: 20000101, end: 20010101
  3. . [Concomitant]

REACTIONS (3)
  - DYSPNOEA [None]
  - EYE SWELLING [None]
  - PULMONARY FIBROSIS [None]
